FAERS Safety Report 6592427 (Version 9)
Quarter: 2020Q4

REPORT INFORMATION
  Report Type: Not Available
  Country: JP (occurrence: JP)
  Receive Date: 20080325
  Receipt Date: 20201027
  Transmission Date: 20210114
  Serious: Yes (Hospitalization, Disabling, Other)
  Sender: FDA-Public Use
  Company Number: JP-JNJFOC-20080303971

PATIENT
  Age: 42 Year
  Sex: Female

DRUGS (12)
  1. RISPERDAL [Suspect]
     Active Substance: RISPERIDONE
     Indication: SCHIZOPHRENIA
     Route: 048
     Dates: start: 20040130, end: 200506
  2. LODOPIN [Concomitant]
     Indication: SCHIZOPHRENIA
     Route: 048
     Dates: start: 19870219, end: 20050516
  3. BARNETIL [Concomitant]
     Active Substance: SULTOPRIDE HYDROCHLORIDE
     Indication: SCHIZOPHRENIA
     Route: 048
     Dates: start: 20030516, end: 20050516
  4. HALOMONTH [Suspect]
     Active Substance: HALOPERIDOL DECANOATE
     Indication: SCHIZOPHRENIA
     Route: 030
     Dates: start: 20040326, end: 20050506
  5. BARNETIL [Concomitant]
     Active Substance: SULTOPRIDE HYDROCHLORIDE
     Indication: INSOMNIA
     Route: 048
     Dates: start: 19980220, end: 20050516
  6. LULLAN [Concomitant]
     Active Substance: PEROSPIRONE HYDROCHLORIDE
     Indication: SCHIZOPHRENIA
     Route: 048
     Dates: start: 20050516
  7. CHLORPROMAZINE. [Concomitant]
     Active Substance: CHLORPROMAZINE
     Indication: SCHIZOPHRENIA
     Route: 048
     Dates: end: 20050516
  8. CHLORPROMAZINE. [Concomitant]
     Active Substance: CHLORPROMAZINE
     Indication: SCHIZOPHRENIA
     Dosage: (P.R.N.)
     Route: 048
     Dates: start: 20020621, end: 20050516
  9. TRIPHEDINON [Concomitant]
     Active Substance: TRIHEXYPHENIDYL HYDROCHLORIDE
     Indication: PARKINSONISM
     Route: 048
     Dates: start: 19981127, end: 20050516
  10. VEGETAMIN-A [Concomitant]
     Active Substance: CHLORPROMAZINE HYDROCHLORIDE\PHENOBARBITAL\PROMETHAZINE
     Indication: INSOMNIA
     Route: 048
     Dates: end: 20050516
  11. HIRNAMIN                           /00038601/ [Concomitant]
     Active Substance: LEVOMEPROMAZINE
     Indication: SCHIZOPHRENIA
     Route: 048
     Dates: start: 19980710, end: 20050516
  12. SERENACE [Concomitant]
     Active Substance: HALOPERIDOL
     Indication: SCHIZOPHRENIA
     Route: 048
     Dates: start: 20021127, end: 20050516

REACTIONS (6)
  - Ventricular tachycardia [Unknown]
  - Electrocardiogram QT prolonged [Recovered/Resolved]
  - Hypoxic-ischaemic encephalopathy [Unknown]
  - Ventricular fibrillation [Unknown]
  - Cardio-respiratory arrest [Unknown]
  - Cerebral disorder [Unknown]
